FAERS Safety Report 16378648 (Version 1)
Quarter: 2019Q2

REPORT INFORMATION
  Report Type: Spontaneous
  Country: DE (occurrence: DE)
  Receive Date: 20190531
  Receipt Date: 20190531
  Transmission Date: 20190711
  Serious: Yes (Hospitalization, Other)
  Sender: FDA-Public Use
  Company Number: DE-BAYER-2019-102348

PATIENT
  Age: 32 Year
  Sex: Female

DRUGS (3)
  1. MAXIM (DROSPIRENONE\ETHINYL ESTRADIOL) [Suspect]
     Active Substance: DROSPIRENONE\ETHINYL ESTRADIOL
     Dosage: 1 DF, QD TAKEN WITHOUT BREAK
     Route: 048
     Dates: start: 20190321, end: 20190503
  2. MAXIM (DROSPIRENONE\ETHINYL ESTRADIOL) [Suspect]
     Active Substance: DROSPIRENONE\ETHINYL ESTRADIOL
     Dosage: 2 DF, QD
     Route: 048
     Dates: start: 201905, end: 20190510
  3. QLAIRA FILMTABLETTEN [Suspect]
     Active Substance: DIENOGEST\ESTRADIOL VALERATE
     Indication: MENSTRUAL CYCLE MANAGEMENT
     Dosage: 1 DF, QD, LONGCYCLE
     Route: 048
     Dates: start: 201905

REACTIONS (6)
  - Drug ineffective for unapproved indication [None]
  - Vaginal haemorrhage [None]
  - Off label use [None]
  - Incorrect product administration duration [None]
  - Abnormal withdrawal bleeding [None]
  - Blood loss anaemia [Recovering/Resolving]

NARRATIVE: CASE EVENT DATE: 20190321
